FAERS Safety Report 6025179-X (Version None)
Quarter: 2008Q4

REPORT INFORMATION
  Report Type: 
  Country: None (occurrence: None)
  Receive Date: 20081224
  Receipt Date: 20081215
  Transmission Date: 20090506
  Serious: Yes (Death, Other)
  Sender: FDA-Public Use
  Company Number: 2008002947

PATIENT
  Age: 47 Year
  Sex: Male
  Weight: 52 kg

DRUGS (12)
  1. ERLOTINIB (ERLOTINIB) (TABLETS) (ERLOTINIB) [Suspect]
     Indication: LUNG SQUAMOUS CELL CARCINOMA STAGE UNSPECIFIED
     Dosage: (150 MG, QD), ORAL
     Route: 048
     Dates: start: 20080805, end: 20080827
  2. OXYCONTIN [Suspect]
  3. FENTANYL CITRATE [Suspect]
  4. VERAPAMIL HYDROCHLORIDE [Suspect]
  5. LOXOPROFEN (LOXOPROFEN) [Concomitant]
  6. AMOXAPINE [Concomitant]
  7. NOVAMIN (PROCHLORPERAZINE) [Concomitant]
  8. LAC-B [Concomitant]
  9. PREDNISOLONE [Concomitant]
  10. OXINORM (ORGOTEIN) [Concomitant]
  11. ZOMETA [Concomitant]
  12. ROPION (FLURBIPROFEN AXETIL) [Concomitant]

REACTIONS (16)
  - ABDOMINAL DISTENSION [None]
  - ABDOMINAL PAIN UPPER [None]
  - DERMATITIS ACNEIFORM [None]
  - DISSEMINATED INTRAVASCULAR COAGULATION [None]
  - GASTRITIS EROSIVE [None]
  - GASTROINTESTINAL OEDEMA [None]
  - HEPATIC FAILURE [None]
  - HEPATIC FUNCTION ABNORMAL [None]
  - ILEUS PARALYTIC [None]
  - INTESTINAL OBSTRUCTION [None]
  - MALIGNANT NEOPLASM PROGRESSION [None]
  - METASTASES TO PERITONEUM [None]
  - NAUSEA [None]
  - RASH [None]
  - SQUAMOUS CELL CARCINOMA [None]
  - VOMITING [None]
